FAERS Safety Report 17827117 (Version 1)
Quarter: 2020Q2

REPORT INFORMATION
  Report Type: Spontaneous
  Country: US (occurrence: US)
  Receive Date: 20200527
  Receipt Date: 20200527
  Transmission Date: 20200714
  Serious: Yes (Hospitalization, Other)
  Sender: FDA-Public Use
  Company Number: US-PACIRA-202000183

PATIENT

DRUGS (3)
  1. EXPAREL [Suspect]
     Active Substance: BUPIVACAINE
     Indication: SHOULDER ARTHROPLASTY
     Dosage: 10 ML OF LB (133 MG)
  2. BUPIVACAINE. [Suspect]
     Active Substance: BUPIVACAINE
     Indication: SHOULDER ARTHROPLASTY
     Dosage: 15 ML
  3. LIDOCAINE. [Suspect]
     Active Substance: LIDOCAINE
     Indication: SHOULDER ARTHROPLASTY
     Dosage: 3 ML

REACTIONS (10)
  - Off label use [Unknown]
  - Nausea [Unknown]
  - Vomiting [Unknown]
  - Haematoma [Unknown]
  - Hypoaesthesia [Unknown]
  - Dizziness [Unknown]
  - Urinary tract infection [Unknown]
  - Joint dislocation [Unknown]
  - Hospitalisation [Unknown]
  - Urinary retention [Unknown]
